FAERS Safety Report 7138657-7 (Version None)
Quarter: 2010Q4

REPORT INFORMATION
  Report Type: 
  Country: None (occurrence: None)
  Receive Date: 20101122
  Receipt Date: 20101104
  Transmission Date: 20110411
  Serious: Yes (Other)
  Sender: FDA-Public Use
  Company Number: 20100516

PATIENT
  Age: 8 Month
  Sex: Female
  Weight: 7 kg

DRUGS (1)
  1. CALCIUM CHLORIDE [Suspect]
     Indication: HYPOCALCAEMIA
     Dosage: 140 MG ONCE INTRAVENOUS
     Route: 042
     Dates: start: 20100914, end: 20100914

REACTIONS (2)
  - HAEMODYNAMIC INSTABILITY [None]
  - OVERDOSE [None]
